FAERS Safety Report 15773009 (Version 1)
Quarter: 2018Q4

REPORT INFORMATION
  Report Type: Spontaneous
  Country: ES (occurrence: ES)
  Receive Date: 20181228
  Receipt Date: 20181228
  Transmission Date: 20190205
  Serious: Yes (Other)
  Sender: FDA-Public Use
  Company Number: ES-009507513-1812ESP001722

PATIENT
  Sex: Female

DRUGS (3)
  1. INTRON A [Suspect]
     Active Substance: INTERFERON ALFA-2B
     Indication: MYCOSIS FUNGOIDES
     Dosage: UNK (VIALS)
  2. INTRON A [Suspect]
     Active Substance: INTERFERON ALFA-2B
     Indication: MYCOSIS FUNGOIDES
     Dosage: 3 MILLION INTERNATIONAL UNIT, QW
  3. INTRON A [Suspect]
     Active Substance: INTERFERON ALFA-2B
     Dosage: 3 MILLION INTERNATIONAL UNIT, 1 X / 10 DAYS

REACTIONS (2)
  - Mycosis fungoides [Unknown]
  - Product use in unapproved indication [Unknown]
